FAERS Safety Report 9403785 (Version 1)
Quarter: 2013Q3

REPORT INFORMATION
  Report Type: Spontaneous
  Country: GB (occurrence: GB)
  Receive Date: 20130712
  Receipt Date: 20130712
  Transmission Date: 20140515
  Serious: Yes (Other)
  Sender: FDA-Public Use
  Company Number: CL-505-2013

PATIENT
  Age: 57 Year
  Sex: Female
  Weight: 62.1 kg

DRUGS (13)
  1. ONDANSETRON [Suspect]
     Indication: ANTIEMETIC SUPPORTIVE CARE
     Route: 042
     Dates: start: 20121101, end: 20121101
  2. FLUOXETINE [Suspect]
     Indication: DEPRESSION
     Route: 048
  3. ATORVASTATIN [Concomitant]
  4. ATRACURIUM [Concomitant]
  5. DEXAMETHASONE [Concomitant]
  6. EPHEDRINE [Concomitant]
  7. FENTANYL [Concomitant]
  8. GENTAMICIN [Concomitant]
  9. METRONIDAZOLE [Concomitant]
  10. NEOSTIGMINE [Concomitant]
  11. PROPOFOL [Concomitant]
  12. RANITIDINE [Concomitant]
  13. SEVOFLURANE [Concomitant]

REACTIONS (6)
  - Coma scale abnormal [None]
  - Procedural hypertension [None]
  - Pyrexia [None]
  - Serotonin syndrome [None]
  - Tachycardia [None]
  - Tremor [None]
